FAERS Safety Report 16499673 (Version 3)
Quarter: 2020Q2

REPORT INFORMATION
  Report Type: Report from Study
  Country: US (occurrence: US)
  Receive Date: 20190701
  Receipt Date: 20200527
  Transmission Date: 20200713
  Serious: Yes (Disabling, Other)
  Sender: FDA-Public Use
  Company Number: US-TEVA-2019-US-1048413

PATIENT
  Age: 68 Year
  Sex: Female

DRUGS (22)
  1. AUSTEDO [Suspect]
     Active Substance: DEUTETRABENAZINE
     Dosage: 24 MILLIGRAM DAILY;
     Route: 048
     Dates: start: 201801, end: 20190101
  2. KLONOPIN [Concomitant]
     Active Substance: CLONAZEPAM
     Dosage: 9 AM
  3. SINGULAIR [Concomitant]
     Active Substance: MONTELUKAST SODIUM
     Dosage: 9 PM
  4. ARICEPT [Concomitant]
     Active Substance: DONEPEZIL HYDROCHLORIDE
     Dosage: 9 PM
  5. HYOSCIAMINE SULFATE [Concomitant]
     Dosage: 0.125 MG, 9 AM, 9 PM
  6. AUSTEDO [Suspect]
     Active Substance: DEUTETRABENAZINE
     Indication: HUNTINGTON^S DISEASE
     Dosage: 24 MILLIGRAM DAILY;
     Route: 048
     Dates: start: 20171015, end: 201712
  7. LAMICTAL [Concomitant]
     Active Substance: LAMOTRIGINE
     Dosage: 9 PM, 2 TABLETS
  8. REMERON [Concomitant]
     Active Substance: MIRTAZAPINE
     Dosage: 9 PM
  9. KLONOPIN [Concomitant]
     Active Substance: CLONAZEPAM
     Dosage: 9 PM
  10. FLUOXETINE [Concomitant]
     Active Substance: FLUOXETINE HYDROCHLORIDE
     Dosage: 9 PM
  11. EPINEPHRINE. [Concomitant]
     Active Substance: EPINEPHRINE
     Dosage: ONLY IN EMERGENCY
  12. AUSTEDO [Suspect]
     Active Substance: DEUTETRABENAZINE
     Dosage: 24 MILLIGRAM DAILY;
     Route: 048
     Dates: start: 20190115, end: 20190401
  13. SODIUM CHLORIDE. [Concomitant]
     Active Substance: SODIUM CHLORIDE
     Dosage: AS NEEDED, 4 TIMES
  14. ZYRTEC [Concomitant]
     Active Substance: CETIRIZINE HYDROCHLORIDE
     Dosage: AS NEEDED, 9 AM
  15. LIPITOR [Concomitant]
     Active Substance: ATORVASTATIN CALCIUM
     Dosage: 9PM
  16. VITAMIN D [Concomitant]
     Active Substance: VITAMIN D NOS
     Dosage: WEEKLY
  17. PEPCID AC [Concomitant]
     Active Substance: FAMOTIDINE
     Dosage: AS NEEDED
  18. FLONASE [Concomitant]
     Active Substance: FLUTICASONE PROPIONATE
     Dosage: DAILY, ONE OR TWO TIMES
  19. LEXAPRO [Concomitant]
     Active Substance: ESCITALOPRAM OXALATE
     Dosage: 1PM
  20. ZYPREXA [Concomitant]
     Active Substance: OLANZAPINE
     Dosage: 9 AM
  21. SEROQUEL [Concomitant]
     Active Substance: QUETIAPINE FUMARATE
     Dosage: 9 PM
  22. VISINE [Concomitant]
     Active Substance: TETRAHYDROZOLINE HYDROCHLORIDE
     Dosage: DAILY, 4 TIMES

REACTIONS (16)
  - Parkinsonism [Not Recovered/Not Resolved]
  - Hospice care [Not Recovered/Not Resolved]
  - Motor dysfunction [Not Recovered/Not Resolved]
  - Huntington^s disease [Not Recovered/Not Resolved]
  - Gait inability [Not Recovered/Not Resolved]
  - Depressed level of consciousness [Recovering/Resolving]
  - Confusional state [Unknown]
  - Urinary tract infection [Recovered/Resolved]
  - Chorea [Recovering/Resolving]
  - Wheelchair user [Not Recovered/Not Resolved]
  - Dysphagia [Recovered/Resolved]
  - Food refusal [Recovered/Resolved]
  - Tremor [Not Recovered/Not Resolved]
  - Decubitus ulcer [Unknown]
  - Extremity contracture [Not Recovered/Not Resolved]
  - Decreased appetite [Not Recovered/Not Resolved]

NARRATIVE: CASE EVENT DATE: 201712
